FAERS Safety Report 6823745-2 (Version None)
Quarter: 2010Q3

REPORT INFORMATION
  Report Type: 
  Country: None (occurrence: None)
  Receive Date: 20100708
  Receipt Date: 20070125
  Transmission Date: 20110219
  Serious: No
  Sender: FDA-Public Use
  Company Number: US-PFIZER INC-2006094795

PATIENT
  Sex: Female
  Weight: 90.72 kg

DRUGS (8)
  1. CHANTIX [Suspect]
     Indication: SMOKING CESSATION THERAPY
     Route: 048
     Dates: start: 20060701
  2. CHANTIX [Suspect]
     Indication: TOBACCO USER
  3. DEPAKOTE [Concomitant]
  4. RISPERDAL [Concomitant]
  5. SYNTHROID [Concomitant]
  6. ATIVAN [Concomitant]
  7. DESMOPRESSIN ACETATE [Concomitant]
  8. MAXZIDE [Concomitant]

REACTIONS (4)
  - ASTHENIA [None]
  - HEADACHE [None]
  - NAUSEA [None]
  - SENSATION OF HEAVINESS [None]
